FAERS Safety Report 8360992-5 (Version None)
Quarter: 2012Q2

REPORT INFORMATION
  Report Type: 
  Country: None (occurrence: None)
  Receive Date: 20120515
  Receipt Date: 20120423
  Transmission Date: 20120825
  Serious: No
  Sender: FDA-Public Use
  Company Number: US-B.I. PHARMACEUTICALS,INC./RIDGEFIELD-2012-BP-10597YA

PATIENT
  Sex: Male

DRUGS (3)
  1. SULFONAMIDE [Suspect]
     Route: 065
  2. FLOMAX [Suspect]
     Route: 065
  3. PNEUMOVAX 23 [Suspect]
     Dosage: 0.5 ML
     Route: 030

REACTIONS (1)
  - HYPERSENSITIVITY [None]
